FAERS Safety Report 9351648 (Version 2)
Quarter: 2013Q3

REPORT INFORMATION
  Report Type: Spontaneous
  Country: JP (occurrence: JP)
  Receive Date: 20130617
  Receipt Date: 20130925
  Transmission Date: 20140515
  Serious: Yes (Death, Other)
  Sender: FDA-Public Use
  Company Number: JP-PFIZER INC-2013176351

PATIENT
  Age: 85 Year
  Sex: Male
  Weight: 58.2 kg

DRUGS (9)
  1. LIPITOR [Suspect]
     Indication: DYSLIPIDAEMIA
     Dosage: 10 MG, 1X/DAY
     Route: 048
     Dates: start: 20130408, end: 20130426
  2. FLIVAS [Concomitant]
     Dosage: UNK
  3. ATARAX-P [Concomitant]
     Dosage: UNK
  4. MILMAG [Concomitant]
     Dosage: UNK
     Route: 048
  5. ALLELOCK [Concomitant]
     Dosage: UNK
  6. PLETAAL [Concomitant]
     Dosage: UNK
  7. PLAVIX [Concomitant]
     Dosage: UNK
     Dates: start: 20130414
  8. TAKEPRON [Concomitant]
     Dosage: UNK
  9. FERROMIA [Concomitant]
     Dosage: UNK

REACTIONS (4)
  - Pneumonitis [Fatal]
  - Heart rate increased [Unknown]
  - Hypotension [Unknown]
  - Vomiting [Unknown]
